FAERS Safety Report 9009960 (Version 1)
Quarter: 2013Q1

REPORT INFORMATION
  Report Type: Spontaneous
  Country: US (occurrence: US)
  Receive Date: 20130110
  Receipt Date: 20130110
  Transmission Date: 20140127
  Serious: Yes (Hospitalization)
  Sender: FDA-Public Use
  Company Number: US-009507513-1301USA003103

PATIENT
  Age: 82 Year
  Sex: Female

DRUGS (6)
  1. SINGULAIR [Suspect]
     Route: 048
  2. MOHRUS [Suspect]
     Indication: CHOLELITHIASIS
     Route: 061
  3. PULMICORT [Suspect]
     Route: 061
  4. INTAL [Suspect]
     Route: 045
  5. LORATADINE [Suspect]
     Route: 048
  6. UNIPHYL [Suspect]
     Route: 048

REACTIONS (3)
  - Vasculitis [Unknown]
  - Nephropathy [Unknown]
  - Off label use [Unknown]
